FAERS Safety Report 6423025-3 (Version None)
Quarter: 2009Q4

REPORT INFORMATION
  Report Type: 
  Country: None (occurrence: None)
  Receive Date: 20091102
  Receipt Date: 20090615
  Transmission Date: 20100525
  Serious: Yes (Death, Hospitalization, Other)
  Sender: FDA-Public Use
  Company Number: PHEH2009US13235

PATIENT
  Sex: Female
  Weight: 62 kg

DRUGS (18)
  1. EXJADE [Suspect]
     Indication: HAEMOCHROMATOSIS
     Dosage: 1000 MG, QD
     Route: 048
     Dates: start: 20081101
  2. FOLFOX-4 [Concomitant]
     Indication: COLON CANCER METASTATIC
  3. AVASTIN [Concomitant]
     Indication: COLON CANCER METASTATIC
  4. CAPECITABINE [Concomitant]
     Indication: COLON CANCER METASTATIC
  5. OXALIPLATIN [Concomitant]
     Indication: COLON CANCER METASTATIC
  6. CLINDAGEL [Concomitant]
     Dosage: ^ONE DAILY^
  7. NEXIUM [Concomitant]
     Dosage: 40 MG, QD
  8. AMBIEN [Concomitant]
     Dosage: UNK
  9. VITAMIN B-12 [Concomitant]
     Dosage: 1000 MCG, QMO
  10. NEURONTIN [Concomitant]
     Dosage: 800 MG, QID
  11. BENTYL [Concomitant]
     Dosage: 10 MG, QID
  12. ZINCATE [Concomitant]
     Dosage: 840 MG, QD
  13. INDOCIN [Concomitant]
     Dosage: UNK
  14. FISH OIL [Concomitant]
     Dosage: ^TWO TABLETS DAILY^
  15. REGLAN [Concomitant]
     Dosage: 5 MG, QID
  16. CALCIUM W/VITAMIN D NOS [Concomitant]
     Dosage: ^TWO TABLETS DAILY^
  17. CEVIMELINE [Concomitant]
     Dosage: 30 MG, QD
  18. COMPAZINE [Concomitant]
     Indication: NAUSEA
     Dosage: 10 MG, PRN

REACTIONS (20)
  - ABDOMINAL TENDERNESS [None]
  - ASCITES [None]
  - ASTHENIA [None]
  - COLON CANCER [None]
  - CONFUSIONAL STATE [None]
  - FATIGUE [None]
  - HEPATIC ENZYME INCREASED [None]
  - HEPATIC FAILURE [None]
  - HEPATIC PAIN [None]
  - HYPERCALCAEMIA [None]
  - JAUNDICE [None]
  - LETHARGY [None]
  - LEUKOCYTOSIS [None]
  - LUMBAR VERTEBRAL FRACTURE [None]
  - MALIGNANT NEOPLASM PROGRESSION [None]
  - METASTASES TO LIVER [None]
  - PAIN [None]
  - RENAL FAILURE ACUTE [None]
  - TACHYCARDIA [None]
  - UNRESPONSIVE TO STIMULI [None]
